FAERS Safety Report 17290983 (Version 1)
Quarter: 2020Q1

REPORT INFORMATION
  Report Type: Report from Study
  Country: CA (occurrence: CA)
  Receive Date: 20200121
  Receipt Date: 20200121
  Transmission Date: 20200409
  Serious: Yes (Hospitalization, Other)
  Sender: FDA-Public Use
  Company Number: CA-BAYER-2019-159596

PATIENT
  Age: 51 Year
  Sex: Female

DRUGS (1)
  1. NEXAVAR [Suspect]
     Active Substance: SORAFENIB
     Indication: FIBROMATOSIS
     Dosage: 400 MG, QD
     Dates: end: 20191119

REACTIONS (7)
  - Hypersensitivity [Unknown]
  - Alopecia [Not Recovered/Not Resolved]
  - Off label use [None]
  - Pain in extremity [Recovering/Resolving]
  - Palmar-plantar erythrodysaesthesia syndrome [Recovering/Resolving]
  - Rash [Recovering/Resolving]
  - Product use in unapproved indication [None]

NARRATIVE: CASE EVENT DATE: 20190828
